FAERS Safety Report 7245131-6 (Version None)
Quarter: 2011Q1

REPORT INFORMATION
  Report Type: 
  Country: None (occurrence: None)
  Receive Date: 20110126
  Receipt Date: 20110120
  Transmission Date: 20110831
  Serious: Yes (Hospitalization)
  Sender: FDA-Public Use
  Company Number: JP-PFIZER INC-2011008304

PATIENT
  Age: 63 Year
  Sex: Female
  Weight: 43.7 kg

DRUGS (26)
  1. ISOVORIN [Suspect]
     Indication: COLORECTAL CANCER METASTATIC
     Dosage: UNK
  2. SOLANAX [Concomitant]
     Dosage: 0.4 MG, 3X/DAY
     Route: 048
  3. IRINOTECAN HCL [Suspect]
     Indication: COLORECTAL CANCER METASTATIC
  4. CS-7017 [Suspect]
     Indication: COLORECTAL CANCER METASTATIC
     Dosage: 0.5/DAY
     Route: 048
     Dates: start: 20101102, end: 20101216
  5. LOPEMIN [Concomitant]
     Indication: DIARRHOEA
     Dosage: 1 MG, AS NEEDED
     Route: 048
  6. GASTER [Concomitant]
     Indication: GASTRITIS PROPHYLAXIS
     Dosage: 40 MG
     Route: 048
  7. AZOPT [Concomitant]
     Indication: GLAUCOMA
     Dosage: UNK
  8. PURSENNID [Concomitant]
     Indication: CONSTIPATION
     Dosage: AS NEEDED
     Route: 048
     Dates: start: 20101108
  9. ALDACTONE [Concomitant]
     Indication: POLYURIA
     Dosage: 2 DF, 2X/DAY
     Route: 048
  10. BISOLVON [Concomitant]
     Indication: NASOPHARYNGITIS
     Dosage: 1X/DAY
     Route: 048
     Dates: start: 20101228
  11. DEXALTIN ORAL OINTMENT 1MG/G [Concomitant]
     Indication: STOMATITIS
     Dosage: AS NEEDED
     Route: 048
  12. KETOPROFEN [Concomitant]
     Indication: ANALGESIC THERAPY
     Dosage: AS NEEDED
     Route: 062
  13. NAUZELIN [Concomitant]
     Dosage: 10 MG, AS NEEDED
     Route: 048
  14. ODOMEL [Concomitant]
     Indication: CONJUNCTIVITIS
     Dosage: UNK
     Dates: start: 20101214
  15. RENIVACE [Concomitant]
     Indication: HYPERTENSION
     Dosage: 5 MG, 1X/DAY
     Route: 048
     Dates: start: 20101022
  16. AZUNOL #1 [Concomitant]
     Indication: INFECTION PROPHYLAXIS
     Dosage: AS NEEDED
  17. LAC B [Concomitant]
     Dosage: 1 MG, 3X/DAY
     Route: 048
  18. DETANTOL [Concomitant]
     Indication: GLAUCOMA
     Dosage: UNK
  19. 5-FU [Suspect]
     Indication: COLORECTAL CANCER METASTATIC
  20. LOXOPROFEN [Concomitant]
     Indication: ANALGESIC THERAPY
     Dosage: UNK
     Route: 048
  21. TRAVATAN Z [Concomitant]
     Indication: GLAUCOMA
     Dosage: 1X/DAY
  22. OPOOL [Concomitant]
     Indication: CONJUNCTIVITIS
     Dosage: UNK
     Dates: start: 20101214
  23. CS-7017 [Suspect]
     Dosage: 0.25 MG
     Route: 048
     Dates: start: 20110104, end: 20110111
  24. ALLEGRA [Concomitant]
     Indication: PRURITUS
     Dosage: 60 MG, 1X/DAY
     Route: 048
  25. RYSMON [Concomitant]
     Indication: GLAUCOMA
     Dosage: 1X/DAY
  26. AMOBAN [Concomitant]
     Indication: HYPNOTHERAPY
     Dosage: 1 MG, 3X/DAY

REACTIONS (2)
  - FATIGUE [None]
  - BRONCHITIS [None]
